FAERS Safety Report 24753874 (Version 1)
Quarter: 2024Q4

REPORT INFORMATION
  Report Type: Spontaneous
  Country: US (occurrence: None)
  Receive Date: 20241218
  Receipt Date: 20241218
  Transmission Date: 20250114
  Serious: No
  Sender: Public
  Company Number: None

PATIENT
  Age: 69 Year
  Sex: Female
  Weight: 92.7 kg

DRUGS (16)
  1. LEQVIO [Suspect]
     Active Substance: INCLISIRAN SODIUM
     Indication: Type IIa hyperlipidaemia
     Dosage: OTHER ROUTE : SUBQ INJECTION;?
     Route: 050
     Dates: start: 20241111, end: 20241111
  2. THYROID [Suspect]
     Active Substance: LEVOTHYROXINE\LIOTHYRONINE
  3. XARELTO [Suspect]
     Active Substance: RIVAROXABAN
  4. CLARINEX [Suspect]
     Active Substance: DESLORATADINE
  5. POTASSIUM CITRATE [Suspect]
     Active Substance: POTASSIUM CITRATE
  6. MYSOLINE [Suspect]
     Active Substance: PRIMIDONE
  7. BUDESONIDE [Suspect]
     Active Substance: BUDESONIDE
  8. NAMENDA [Suspect]
     Active Substance: MEMANTINE HYDROCHLORIDE
  9. LOSARTAN [Suspect]
     Active Substance: LOSARTAN
  10. CARDIZEM [Suspect]
     Active Substance: DILTIAZEM HYDROCHLORIDE
  11. Biocomplete 3 [Concomitant]
  12. Agilease, [Concomitant]
  13. BLM [Concomitant]
  14. DIETARY SUPPLEMENT [Suspect]
     Active Substance: DIETARY SUPPLEMENT
  15. TYLENOL [Suspect]
     Active Substance: ACETAMINOPHEN
  16. CHLORPHENIRAMINE [Suspect]
     Active Substance: CHLORPHENIRAMINE

REACTIONS (4)
  - Injection site rash [None]
  - Pruritus [None]
  - Exfoliative rash [None]
  - Rash erythematous [None]

NARRATIVE: CASE EVENT DATE: 20241130
